FAERS Safety Report 22048373 (Version 1)
Quarter: 2023Q1

REPORT INFORMATION
  Report Type: Spontaneous
  Country: JP (occurrence: JP)
  Receive Date: 20230301
  Receipt Date: 20230301
  Transmission Date: 20230418
  Serious: Yes (Other)
  Sender: FDA-Public Use
  Company Number: JP-STRIDES ARCOLAB LIMITED-2023SP002982

PATIENT
  Age: 19 Year
  Sex: Female

DRUGS (9)
  1. ETOPOSIDE [Suspect]
     Active Substance: ETOPOSIDE
     Indication: Acute myeloid leukaemia
     Dosage: UNK (CONSOLIDATION CHEMOTHERAPY ) (DRUG DISCONTINUED AND THEN ADMINISTERED AS REINDUCTION THERAPY )
     Route: 065
  2. ETOPOSIDE [Suspect]
     Active Substance: ETOPOSIDE
     Dosage: UNK (REINDUCTION CHEMOTHERAPY )
     Route: 065
  3. DAUNORUBICIN [Suspect]
     Active Substance: DAUNORUBICIN
     Indication: Acute myeloid leukaemia
     Dosage: UNK (TWO COURSES OF INDUCTION THERAPY)
     Route: 065
  4. CYTARABINE [Suspect]
     Active Substance: CYTARABINE
     Indication: Acute myeloid leukaemia
     Dosage: UNK (TWO COURSES OF INDUCTION THERAPY) (LATER, ADMINISTERED AS REINDUCTION THERAPY )
     Route: 065
  5. CYTARABINE [Suspect]
     Active Substance: CYTARABINE
     Dosage: UNK (HIGH DOSE )
     Route: 065
  6. CYTARABINE [Suspect]
     Active Substance: CYTARABINE
     Dosage: UNK (REINDUCTION CHEMOTHERAPY )
     Route: 065
  7. CYTARABINE [Suspect]
     Active Substance: CYTARABINE
     Dosage: UNK (2 COURSES OF CONSOLIDATION CHEMOTHERAPY WITH HIGH DOSE )
     Route: 065
  8. CYTARABINE [Suspect]
     Active Substance: CYTARABINE
     Dosage: UNK (OVARIAN SHIELDING REGIMEN AND HIGH DOSE )
     Route: 065
  9. MITOXANTRONE [Suspect]
     Active Substance: MITOXANTRONE HYDROCHLORIDE
     Indication: Acute myeloid leukaemia
     Dosage: UNK (CONSOLIDATION CHEMOTHERAPY  )
     Route: 065

REACTIONS (2)
  - Cardiac dysfunction [Unknown]
  - Off label use [Unknown]
